FAERS Safety Report 17839524 (Version 1)
Quarter: 2020Q2

REPORT INFORMATION
  Report Type: Spontaneous
  Country: GB (occurrence: GB)
  Receive Date: 20200529
  Receipt Date: 20200529
  Transmission Date: 20200714
  Serious: Yes (Other)
  Sender: FDA-Public Use
  Company Number: NVSC2020GB147221

PATIENT
  Age: 27 Year
  Sex: Female

DRUGS (3)
  1. CERTOLIZUMAB PEGOL [Suspect]
     Active Substance: CERTOLIZUMAB PEGOL
     Indication: AXIAL SPONDYLOARTHRITIS
     Dosage: 400 MG, BIW
     Route: 058
     Dates: start: 20191218
  2. CLARITHROMYCIN. [Suspect]
     Active Substance: CLARITHROMYCIN
     Indication: LARYNGITIS
     Route: 065
  3. CERTOLIZUMAB PEGOL [Suspect]
     Active Substance: CERTOLIZUMAB PEGOL
     Dosage: 200 MG, BIW
     Route: 058
     Dates: end: 20200131

REACTIONS (6)
  - Influenza [Recovering/Resolving]
  - Lower respiratory tract infection [Unknown]
  - Abdominal discomfort [Recovered/Resolved]
  - Headache [Recovered/Resolved]
  - Nausea [Recovered/Resolved]
  - Hidradenitis [Unknown]

NARRATIVE: CASE EVENT DATE: 201912
